FAERS Safety Report 8936890 (Version 3)
Quarter: 2013Q1

REPORT INFORMATION
  Report Type: Spontaneous
  Country: BE (occurrence: BE)
  Receive Date: 20121130
  Receipt Date: 20130104
  Transmission Date: 20140127
  Serious: No
  Sender: FDA-Public Use
  Company Number: PHHY2012BE109757

PATIENT
  Age: 20 Year
  Sex: Male

DRUGS (1)
  1. GILENYA [Suspect]
     Dosage: 0.5 MG, QD
     Route: 048
     Dates: start: 201111

REACTIONS (6)
  - Arrhythmia [Unknown]
  - Palpitations [Unknown]
  - Malaise [Recovered/Resolved]
  - Chest discomfort [Unknown]
  - Dizziness [Unknown]
  - Headache [Unknown]
